FAERS Safety Report 23880867 (Version 6)
Quarter: 2025Q1

REPORT INFORMATION
  Report Type: Spontaneous
  Country: SA (occurrence: SA)
  Receive Date: 20240521
  Receipt Date: 20250103
  Transmission Date: 20250409
  Serious: Yes (Other)
  Sender: NOVARTIS
  Company Number: SA-002147023-NVSC2024SA104153

PATIENT
  Age: 0 Year
  Sex: Male
  Weight: 3.6 kg

DRUGS (1)
  1. ONASEMNOGENE ABEPARVOVEC [Suspect]
     Active Substance: ONASEMNOGENE ABEPARVOVEC
     Indication: Spinal muscular atrophy
     Route: 042
     Dates: start: 20240319, end: 20240319

REACTIONS (4)
  - Gamma-glutamyltransferase abnormal [Recovered/Resolved]
  - Hepatic enzyme abnormal [Recovered/Resolved]
  - Lower respiratory tract infection [Recovered/Resolved]
  - Influenza [Recovered/Resolved]

NARRATIVE: CASE EVENT DATE: 20240515
